FAERS Safety Report 5577510-7 (Version None)
Quarter: 2007Q4

REPORT INFORMATION
  Report Type: 
  Country: None (occurrence: None)
  Receive Date: 20071228
  Receipt Date: 20071217
  Transmission Date: 20080405
  Serious: Yes (Other)
  Sender: FDA-Public Use
  Company Number: US-PFIZER INC-2007106960

PATIENT
  Sex: Male
  Weight: 52.2 kg

DRUGS (3)
  1. PHENYTOIN [Suspect]
  2. DILANTIN [Suspect]
  3. ACETYLSALICYLIC ACID SRT [Concomitant]

REACTIONS (1)
  - VISUAL DISTURBANCE [None]
